FAERS Safety Report 11883475 (Version 3)
Quarter: 2016Q1

REPORT INFORMATION
  Report Type: Report from Study
  Country: AU (occurrence: AU)
  Receive Date: 20151231
  Receipt Date: 20160222
  Transmission Date: 20160526
  Serious: Yes (Other)
  Sender: FDA-Public Use
  Company Number: PHHY2015AU089818

PATIENT
  Age: 27 Year
  Sex: Female
  Weight: 75 kg

DRUGS (2)
  1. MYFORTIC [Suspect]
     Active Substance: MYCOPHENOLATE SODIUM
     Indication: PRODUCT USED FOR UNKNOWN INDICATION
     Dosage: UNK
     Route: 065
  2. PERINDOPRIL [Concomitant]
     Active Substance: PERINDOPRIL
     Indication: PRODUCT USED FOR UNKNOWN INDICATION
     Dosage: 10 MG, UNK
     Route: 065

REACTIONS (4)
  - Cerebral disorder [Unknown]
  - Syncope [Recovered/Resolved]
  - Intracranial pressure increased [Unknown]
  - Headache [Unknown]

NARRATIVE: CASE EVENT DATE: 2013
